FAERS Safety Report 7958304-1 (Version None)
Quarter: 2011Q4

REPORT INFORMATION
  Report Type: 
  Country: None (occurrence: None)
  Receive Date: 20111205
  Receipt Date: 20111121
  Transmission Date: 20120403
  Serious: Yes (Other)
  Sender: FDA-Public Use
  Company Number: FR-ACTELION-A-CH2011-49866

PATIENT
  Sex: Female

DRUGS (2)
  1. TRACLEER [Suspect]
     Indication: PULMONARY ARTERIAL HYPERTENSION
     Dosage: 62.5 MG, BID
     Route: 048
     Dates: start: 20110301
  2. VOLIBRIS [Suspect]

REACTIONS (6)
  - OEDEMA PERIPHERAL [None]
  - RESTRICTIVE PULMONARY DISEASE [None]
  - JUGULAR VEIN DISTENSION [None]
  - CARDIAC FAILURE [None]
  - HYPOVENTILATION [None]
  - EXERCISE TOLERANCE DECREASED [None]
